FAERS Safety Report 21419859 (Version 1)
Quarter: 2022Q4

REPORT INFORMATION
  Report Type: Other
  Country: DE (occurrence: DE)
  Receive Date: 20221006
  Receipt Date: 20221006
  Transmission Date: 20230112
  Serious: Yes (Hospitalization)
  Sender: FDA-Public Use
  Company Number: DE-CELLTRION INC.-2022DE016062

PATIENT

DRUGS (6)
  1. TRASTUZUMAB [Interacting]
     Active Substance: TRASTUZUMAB
     Indication: Product used for unknown indication
     Dosage: ROUTED: ROA-20045000
     Route: 065
  2. PERTUZUMAB [Suspect]
     Active Substance: PERTUZUMAB
     Indication: Product used for unknown indication
     Dosage: ROUTE: ROA-20045000
     Route: 065
  3. PACLITAXEL [Interacting]
     Active Substance: PACLITAXEL
     Indication: Product used for unknown indication
     Dosage: ROUTE: ROA-20045000
     Route: 065
  4. TAMOXIFEN [Suspect]
     Active Substance: TAMOXIFEN
     Indication: Product used for unknown indication
     Dosage: 20 MG,  0-0-1-0 (ROUTE: ROA-20053000)
     Route: 065
  5. LEVOTHYROXINE SODIUM [Concomitant]
     Active Substance: LEVOTHYROXINE SODIUM
     Dosage: 125 UG, 1-0-0-0 (ROUTE: ROA-20053000)
     Route: 065
  6. METOPROLOL [Concomitant]
     Active Substance: METOPROLOL
     Dosage: 23.75 MG (ROUTE: ROA-20053000)
     Route: 065

REACTIONS (11)
  - Chest discomfort [Unknown]
  - Chest discomfort [Unknown]
  - Angina pectoris [Unknown]
  - Dyspnoea exertional [Unknown]
  - Hypertension [Unknown]
  - Dyspnoea [Unknown]
  - Pericardial effusion [Unknown]
  - Tachycardia [Unknown]
  - Dyspnoea [Unknown]
  - Product monitoring error [Unknown]
  - Labelled drug-drug interaction medication error [Unknown]
